FAERS Safety Report 5563505-6 (Version None)
Quarter: 2007Q4

REPORT INFORMATION
  Report Type: 
  Country: None (occurrence: None)
  Receive Date: 20071217
  Receipt Date: 20070618
  Transmission Date: 20080405
  Serious: No
  Sender: FDA-Public Use
  Company Number: US-ASTRAZENECA-2007UW14529

PATIENT
  Age: 74 Year
  Sex: Male
  Weight: 64.4 kg

DRUGS (6)
  1. CRESTOR [Suspect]
     Indication: BLOOD CHOLESTEROL INCREASED
     Route: 048
  2. ACEBUTOLOL [Concomitant]
  3. CELEBREX [Concomitant]
  4. POTASSIUM CHLORIDE [Concomitant]
  5. HYDROCODONE BITARTRATE [Concomitant]
  6. DIURETIC [Concomitant]

REACTIONS (4)
  - HYPOAESTHESIA [None]
  - NERVE INJURY [None]
  - PAIN IN EXTREMITY [None]
  - PARAESTHESIA [None]
